FAERS Safety Report 7971744-X (Version None)
Quarter: 2011Q4

REPORT INFORMATION
  Report Type: 
  Country: None (occurrence: None)
  Receive Date: 20111212
  Receipt Date: 20111128
  Transmission Date: 20120403
  Serious: Yes (Other)
  Sender: FDA-Public Use
  Company Number: FR-CELGENEUS-056-21880-11101889

PATIENT
  Age: 88 Year
  Sex: Female

DRUGS (4)
  1. REVLIMID [Suspect]
     Route: 048
     Dates: start: 20110812, end: 20110905
  2. REVLIMID [Suspect]
     Indication: MULTIPLE MYELOMA
     Dosage: 15 MILLIGRAM
     Route: 048
     Dates: end: 20110719
  3. PHENOXYMETHYL PENICILLIN [Concomitant]
     Dosage: 2 INTERNATIONAL UNITS MILLIONS
     Route: 048
     Dates: end: 20110719
  4. BACTRIM [Concomitant]
     Route: 065
     Dates: end: 20110719

REACTIONS (1)
  - HEPATITIS CHOLESTATIC [None]
